FAERS Safety Report 19490078 (Version 2)
Quarter: 2021Q3

REPORT INFORMATION
  Report Type: Spontaneous
  Country: GB (occurrence: GB)
  Receive Date: 20210705
  Receipt Date: 20210709
  Transmission Date: 20211014
  Serious: Yes (Hospitalization)
  Sender: FDA-Public Use
  Company Number: GB-CELLTRION INC.-2021GB008635

PATIENT

DRUGS (5)
  1. REMSIMA [Suspect]
     Active Substance: INFLIXIMAB
     Dosage: 120 MG, EOW (EVERY OTHER WEEK) AS DIRECTED/FORTNIGHTLY
     Route: 058
  2. REMSIMA [Suspect]
     Active Substance: INFLIXIMAB
     Dosage: 120 MG, EOW (EVERY OTHER WEEK) AS DIRECTED/FORTNIGHTLY
     Route: 058
  3. REMSIMA [Suspect]
     Active Substance: INFLIXIMAB
     Indication: RHEUMATOID ARTHRITIS
     Dosage: 120 MG, EOW (EVERY OTHER WEEK) AS DIRECTED/FORTNIGHTLY
     Route: 058
  4. REMSIMA [Suspect]
     Active Substance: INFLIXIMAB
     Dosage: 120 MG, EOW (EVERY OTHER WEEK) AS DIRECTED/FORTNIGHTLY
     Route: 058
  5. REMSIMA [Suspect]
     Active Substance: INFLIXIMAB
     Dosage: 120 MG, EOW (EVERY OTHER WEEK) AS DIRECTED/FORTNIGHTLY
     Route: 058

REACTIONS (2)
  - Drug hypersensitivity [Recovered/Resolved]
  - Peripheral swelling [Unknown]

NARRATIVE: CASE EVENT DATE: 20210621
